FAERS Safety Report 6574425-2 (Version None)
Quarter: 2010Q1

REPORT INFORMATION
  Report Type: 
  Country: None (occurrence: None)
  Receive Date: 20100209
  Receipt Date: 20100203
  Transmission Date: 20100710
  Serious: Yes (Other)
  Sender: FDA-Public Use
  Company Number: US-RB-002266-10

PATIENT
  Sex: Female

DRUGS (1)
  1. MUCINEX DM [Suspect]
     Route: 048
     Dates: start: 20100127

REACTIONS (2)
  - CHEST DISCOMFORT [None]
  - CHEST PAIN [None]
